FAERS Safety Report 4341942-5 (Version None)
Quarter: 2004Q2

REPORT INFORMATION
  Report Type: 
  Country: None (occurrence: None)
  Receive Date: 20040415
  Receipt Date: 20040331
  Transmission Date: 20050107
  Serious: Yes (Other)
  Sender: FDA-Public Use
  Company Number: USA040258429

PATIENT
  Age: 8 Year
  Sex: Male
  Weight: 30 kg

DRUGS (4)
  1. STRATTERA [Suspect]
     Indication: ATTENTION DEFICIT/HYPERACTIVITY DISORDER
     Dosage: 36  MG/DAY
     Dates: start: 20031017, end: 20031125
  2. FLOVENT [Concomitant]
  3. CLARITIN [Concomitant]
  4. RINHOCORT (BUDESONIDE) [Concomitant]

REACTIONS (3)
  - ARRHYTHMIA [None]
  - ELECTROCARDIOGRAM ABNORMAL [None]
  - PSYCHOMOTOR HYPERACTIVITY [None]
